FAERS Safety Report 8138112-1 (Version None)
Quarter: 2012Q1

REPORT INFORMATION
  Report Type: 
  Country: None (occurrence: None)
  Receive Date: 20120215
  Receipt Date: 20120215
  Transmission Date: 20120608
  Serious: No
  Sender: FDA-Public Use
  Company Number: None

PATIENT
  Age: 82 Year
  Sex: Female
  Weight: 110.67 kg

DRUGS (1)
  1. FEMARA [Suspect]

REACTIONS (2)
  - DIZZINESS [None]
  - HOT FLUSH [None]
